FAERS Safety Report 4579540-0 (Version None)
Quarter: 2005Q1

REPORT INFORMATION
  Report Type: 
  Country: None (occurrence: None)
  Receive Date: 20050214
  Receipt Date: 20050201
  Transmission Date: 20050727
  Serious: Yes (Life-Threatening)
  Sender: FDA-Public Use
  Company Number: US-JNJFOC-20050200654

PATIENT
  Sex: Female
  Weight: 76.2 kg

DRUGS (20)
  1. REMICADE [Suspect]
     Route: 042
  2. REMICADE [Suspect]
     Route: 042
  3. REMICADE [Suspect]
     Route: 042
  4. REMICADE [Suspect]
     Route: 042
  5. REMICADE [Suspect]
     Route: 042
  6. REMICADE [Suspect]
     Route: 042
  7. REMICADE [Suspect]
     Route: 042
  8. REMICADE [Suspect]
     Route: 042
  9. REMICADE [Suspect]
     Route: 042
  10. REMICADE [Suspect]
     Route: 042
  11. REMICADE [Suspect]
     Route: 042
  12. REMICADE [Suspect]
     Route: 042
  13. REMICADE [Suspect]
     Route: 042
  14. REMICADE [Suspect]
     Indication: CROHN'S DISEASE
     Route: 042
  15. ANTIBIOTICS [Concomitant]
  16. NARCOTIC ANALGESICS [Concomitant]
  17. ACIPHEX [Concomitant]
  18. FOLIC ACID [Concomitant]
  19. B12 [Concomitant]
  20. 6TG [Concomitant]

REACTIONS (3)
  - ANGIOPATHY [None]
  - CHOLELITHIASIS [None]
  - SPLENOMEGALY [None]
